FAERS Safety Report 7109927-3 (Version None)
Quarter: 2010Q4

REPORT INFORMATION
  Report Type: 
  Country: None (occurrence: None)
  Receive Date: 20101118
  Receipt Date: 20101110
  Transmission Date: 20110411
  Serious: Yes (Death, Hospitalization)
  Sender: FDA-Public Use
  Company Number: US-SANOFI-AVENTIS-2010SA069213

PATIENT
  Sex: Male

DRUGS (3)
  1. ELOXATIN [Suspect]
     Route: 041
  2. FOLINIC ACID [Suspect]
     Route: 042
  3. FLUOROURACIL [Suspect]
     Route: 042

REACTIONS (2)
  - NEUROTOXICITY [None]
  - RESPIRATORY FAILURE [None]
